FAERS Safety Report 6315582-2 (Version None)
Quarter: 2009Q3

REPORT INFORMATION
  Report Type: 
  Country: None (occurrence: None)
  Receive Date: 20090818
  Receipt Date: 20090804
  Transmission Date: 20100115
  Serious: Yes (Hospitalization, Disabling)
  Sender: FDA-Public Use
  Company Number: DSJ-2009-09140

PATIENT
  Age: 81 Year
  Weight: 84 kg

DRUGS (20)
  1. OLMETEC (OLMESARTAN MEDOXOMIL) (TABLET) (OLMESARTAN MEDOXOMIL) [Suspect]
     Indication: HYPERTENSION
     Dosage: SEE IMAGE, ORAL
     Route: 048
     Dates: end: 20090514
  2. OLMETEC (OLMESARTAN MEDOXOMIL) (TABLET) (OLMESARTAN MEDOXOMIL) [Suspect]
     Indication: HYPERTENSION
     Dosage: SEE IMAGE, ORAL
     Route: 048
     Dates: start: 20090515, end: 20090521
  3. OLMETEC (OLMESARTAN MEDOXOMIL) (TABLET) (OLMESARTAN MEDOXOMIL) [Suspect]
     Indication: HYPERTENSION
     Dosage: SEE IMAGE, ORAL
     Route: 048
     Dates: start: 20090522, end: 20090525
  4. OLMETEC (OLMESARTAN MEDOXOMIL) (TABLET) (OLMESARTAN MEDOXOMIL) [Suspect]
     Indication: HYPERTENSION
     Dosage: SEE IMAGE, ORAL
     Route: 048
     Dates: start: 20090526
  5. ASPIRIN [Concomitant]
  6. THYRADIN S (LEVOTHYROXINE SODIUM) (LEVOTHYROXINE SODIUM) [Concomitant]
  7. HARNAL D (TAMSULOSIN HYDROCHLORIDE (TAMSULOSIN HYDROCHLORIDE) [Concomitant]
  8. LASIX [Concomitant]
  9. ALDACTONE A (SPIRONOLACTONE) (SPIRONOLACTONE) [Concomitant]
  10. PLETAAL (CILOSTAZOL) (CILOSTAZOL) [Concomitant]
  11. ALLOPURINOL [Concomitant]
  12. ALLEGRA (FEXOFENADINE HYDROCHLORIDE) (FEXOFENADINE HYDROCHLORIDE) [Concomitant]
  13. FERROMIA (FERROUS CITRATE) (FERROUS CITRATE) [Concomitant]
  14. PIMOBENDAN (PIMOBENDAN) (PIMOBENDAN) [Concomitant]
  15. DIART (AZOSEMIDE) (AZOSEMIDE) [Concomitant]
  16. KREMEZIN (CHARCOAL, ACTIVATED) (CHARCOAL, ACTIVATED) [Concomitant]
  17. OMEPRAL (OMEPRAZOLE) (OMEPRAZOLE) [Concomitant]
  18. KAMAG G (MAGNESIUM OXIDE) (MAGNESIUM OXIDE) [Concomitant]
  19. SILECE (FLUNITRAZEPAM) (FLUNITRAZEPAM) [Concomitant]
  20. LENDORMIN D (BROTIZOLAM) (BROTIZOLAM) [Concomitant]

REACTIONS (2)
  - CARDIAC FAILURE CONGESTIVE [None]
  - RENAL FAILURE CHRONIC [None]
